FAERS Safety Report 8815233 (Version 1)
Quarter: 2012Q4

REPORT INFORMATION
  Report Type: 
  Country: US (occurrence: US)
  Receive Date: 20120928
  Receipt Date: 20120928
  Transmission Date: 20130627
  Serious: Yes (Hospitalization)
  Sender: FDA-Public Use
  Company Number: US-TEVA-361315USA

PATIENT
  Age: 70 None
  Sex: Male

DRUGS (3)
  1. TREANDA [Suspect]
     Indication: CHRONIC LYMPHOCYTIC LEUKAEMIA
     Dosage: 5 cycles
     Dates: end: 20120913
  2. GABAPENTIN [Concomitant]
     Dosage: 1800 Milligram Daily;
     Route: 048
  3. DIAZEPAM [Concomitant]

REACTIONS (5)
  - Psychotic disorder [Recovering/Resolving]
  - Pneumonia [Unknown]
  - Aggression [Recovering/Resolving]
  - Hallucination [Unknown]
  - Agitation [Unknown]
